FAERS Safety Report 6960191-5 (Version None)
Quarter: 2010Q3

REPORT INFORMATION
  Report Type: 
  Country: None (occurrence: None)
  Receive Date: 20100901
  Receipt Date: 20100820
  Transmission Date: 20110219
  Serious: Yes (Hospitalization)
  Sender: FDA-Public Use
  Company Number: PHHY2010US42435

PATIENT
  Sex: Female

DRUGS (3)
  1. FEMARA [Suspect]
     Indication: BONE NEOPLASM MALIGNANT
     Dosage: UNK
  2. CHEMOTHERAPEUTICS NOS [Concomitant]
     Dosage: UNK
  3. RADIATION THERAPY [Concomitant]
     Dosage: UNK

REACTIONS (4)
  - BLOOD POTASSIUM ABNORMAL [None]
  - COLON INJURY [None]
  - ILEOSTOMY [None]
  - RENAL FAILURE [None]
